FAERS Safety Report 5282033-9 (Version None)
Quarter: 2007Q1

REPORT INFORMATION
  Report Type: 
  Country: None (occurrence: None)
  Receive Date: 20070330
  Receipt Date: 20070321
  Transmission Date: 20070707
  Serious: Yes (Life-Threatening, Hospitalization, Disabling, Other)
  Sender: FDA-Public Use
  Company Number: TR-MERCK-0703TUR00004

PATIENT
  Age: 49 Year
  Sex: Male

DRUGS (3)
  1. ZOCOR [Suspect]
     Route: 048
  2. CLOPIDOGREL BISULFATE [Concomitant]
     Route: 048
  3. PHENYTOIN SODIUM [Concomitant]
     Route: 048

REACTIONS (2)
  - INTENTIONAL OVERDOSE [None]
  - SUICIDE ATTEMPT [None]
